FAERS Safety Report 21211433 (Version 5)
Quarter: 2022Q4

REPORT INFORMATION
  Report Type: Report from Study
  Country: CA (occurrence: CA)
  Receive Date: 20220815
  Receipt Date: 20221121
  Transmission Date: 20230113
  Serious: Yes (Other)
  Sender: FDA-Public Use
  Company Number: CA-NOVARTISPH-NVSC2022CA182028

PATIENT
  Age: 49 Year
  Sex: Female

DRUGS (4)
  1. HYRIMOZ [Suspect]
     Active Substance: ADALIMUMAB-ADAZ
     Indication: Psoriatic arthropathy
     Dosage: 40 MG
     Route: 058
     Dates: start: 20220721
  2. HYRIMOZ [Suspect]
     Active Substance: ADALIMUMAB-ADAZ
     Indication: Iridocyclitis
     Dosage: 40 MG (SECOND INJECTION)
     Route: 065
     Dates: start: 20220804
  3. HYRIMOZ [Suspect]
     Active Substance: ADALIMUMAB-ADAZ
     Dosage: UNK
     Route: 065
     Dates: start: 20221013
  4. METHOTREXATE [Concomitant]
     Active Substance: METHOTREXATE
     Indication: Product used for unknown indication
     Dosage: UNK, QW
     Route: 065

REACTIONS (15)
  - Blindness [Unknown]
  - Psoriatic arthropathy [Unknown]
  - Pain [Unknown]
  - Uveitis [Unknown]
  - Abnormal sensation in eye [Unknown]
  - COVID-19 [Not Recovered/Not Resolved]
  - Fibromyalgia [Unknown]
  - Asthenia [Unknown]
  - Fatigue [Unknown]
  - Hypersomnia [Unknown]
  - Feeling abnormal [Unknown]
  - Hernia [Unknown]
  - Psoriasis [Unknown]
  - Product dose omission in error [Unknown]
  - Gene mutation [Unknown]

NARRATIVE: CASE EVENT DATE: 20221012
